FAERS Safety Report 19017783 (Version 3)
Quarter: 2021Q2

REPORT INFORMATION
  Report Type: Report from Study
  Country: US (occurrence: US)
  Receive Date: 20210316
  Receipt Date: 20210610
  Transmission Date: 20210717
  Serious: Yes (Hospitalization, Other)
  Sender: FDA-Public Use
  Company Number: US-BIOGEN-2021BI00987409

PATIENT
  Age: 31 Year
  Sex: Female

DRUGS (2)
  1. TYSABRI [Suspect]
     Active Substance: NATALIZUMAB
     Indication: MULTIPLE SCLEROSIS
     Route: 065
     Dates: start: 20150316, end: 20170525
  2. TYSABRI [Suspect]
     Active Substance: NATALIZUMAB
     Dosage: INFUSED FOR OVER 1 HOUR
     Route: 042
     Dates: start: 20201203, end: 20210107

REACTIONS (8)
  - Infection [Unknown]
  - Post procedural complication [Unknown]
  - Decreased immune responsiveness [Unknown]
  - Stress [Unknown]
  - Peroneal nerve palsy [Unknown]
  - Blood count abnormal [Unknown]
  - Multiple sclerosis relapse [Unknown]
  - Infection susceptibility increased [Unknown]

NARRATIVE: CASE EVENT DATE: 202102
